FAERS Safety Report 22208336 (Version 2)
Quarter: 2023Q2

REPORT INFORMATION
  Report Type: Report from Study
  Country: IT (occurrence: IT)
  Receive Date: 20230413
  Receipt Date: 20230508
  Transmission Date: 20230722
  Serious: Yes (Other)
  Sender: FDA-Public Use
  Company Number: IT-ROCHE-3321765

PATIENT
  Age: 53 Year
  Sex: Male

DRUGS (8)
  1. PREDNISONE [Suspect]
     Active Substance: PREDNISONE
     Indication: Diffuse large B-cell lymphoma stage III
     Dosage: 100MG, R-CHOP-21 + 2R THERAPY; ON DAYS 1-5 ADMINISTERED EVERY 21 DAYS SCHEDULED FOR 6 COURSES
     Route: 048
  2. DOXORUBICIN [Suspect]
     Active Substance: DOXORUBICIN
     Indication: Diffuse large B-cell lymphoma stage III
     Dosage: DOSE WAS REDUCED BY 25 PERCENT
     Route: 065
  3. DOXORUBICIN [Suspect]
     Active Substance: DOXORUBICIN
     Dosage: 50 MG/SQ. M (R-CHOP-21 + 2R THERAPY; ON DAY 1 ADMINISTERED EVERY 21 DAYS SCHEDULED FOR 6 COURSES)
     Route: 042
  4. CYCLOPHOSPHAMIDE [Suspect]
     Active Substance: CYCLOPHOSPHAMIDE
     Indication: Diffuse large B-cell lymphoma stage III
     Dosage: 750 MG/SQ. M (R-CHOP-21 + 2R THERAPY ON DAY 1 ADMINISTERED EVERY 21 DAYS SCHEDULED FOR 6 COURSES)
     Route: 042
  5. VINCRISTINE [Suspect]
     Active Substance: VINCRISTINE
     Indication: Diffuse large B-cell lymphoma stage III
     Dosage: DOSE WAS REDUCED BY 20 PERCENT
     Route: 065
  6. VINCRISTINE [Suspect]
     Active Substance: VINCRISTINE
     Dosage: 1.4 MG/M2, MAXIMUM DOSE 2 MG (R-CHOP-21 + 2R THERAPY; ON DAY 1 ADMINISTERED EVERY 21 DAYS
     Route: 042
  7. RITUXIMAB [Suspect]
     Active Substance: RITUXIMAB
     Indication: Diffuse large B-cell lymphoma stage III
     Dosage: 375 MG/M2 (R-CHOP-21 + 2R THERAPY; ON DAY 1 ADMINISTERED EVERY 21 DAYS SCHEDULED FOR 6 COURSES)
     Route: 042
  8. LAMIVUDINE [Concomitant]
     Active Substance: LAMIVUDINE
     Indication: Prophylaxis
     Dosage: UNK
     Route: 065

REACTIONS (1)
  - Hepatitis B reactivation [Recovered/Resolved]
